FAERS Safety Report 10101741 (Version 1)
Quarter: 2014Q2

REPORT INFORMATION
  Report Type: Spontaneous
  Country: FI (occurrence: None)
  Receive Date: 20140422
  Receipt Date: 20140422
  Transmission Date: 20141212
  Serious: Yes (Hospitalization)
  Sender: FDA-Public Use
  Company Number: 2014-001041

PATIENT
  Age: 67 Year
  Sex: Female

DRUGS (4)
  1. OPTINATE [Suspect]
     Indication: OSTEOPOROSIS
     Route: 048
     Dates: start: 1995, end: 2008
  2. BONIVA [Suspect]
     Indication: OSTEOPOROSIS
     Route: 048
     Dates: start: 200804, end: 201212
  3. PROLIA [Suspect]
     Indication: OSTEOPOROSIS
     Route: 058
     Dates: start: 201212, end: 201212
  4. ESOMEPRAZOLE (ESOMEPRAZOLE) [Concomitant]

REACTIONS (5)
  - Atypical femur fracture [None]
  - Bone swelling [None]
  - Bone disorder [None]
  - Gait disturbance [None]
  - Fall [None]
